FAERS Safety Report 4735185-0 (Version None)
Quarter: 2005Q3

REPORT INFORMATION
  Report Type: 
  Country: None (occurrence: None)
  Receive Date: 20050804
  Receipt Date: 20050719
  Transmission Date: 20060218
  Serious: Yes (Hospitalization)
  Sender: FDA-Public Use
  Company Number: 215844

PATIENT
  Age: 49 Year
  Sex: Female
  Weight: 86 kg

DRUGS (5)
  1. BEVACIZUMAB                       (BEVACIZUMAB) [Suspect]
     Indication: OVARIAN CANCER
     Dosage: 1336 MG, Q3W, INTRAVENOUS
     Route: 042
     Dates: start: 20050420, end: 20050622
  2. ALPRAZOLAM [Concomitant]
  3. LISINOPRIL [Concomitant]
  4. RANITIDINE [Concomitant]
  5. DARVOCET [Concomitant]

REACTIONS (14)
  - ABDOMINAL ADHESIONS [None]
  - APPENDICEAL ABSCESS [None]
  - APPENDICITIS [None]
  - APPENDICITIS PERFORATED [None]
  - APPENDIX DISORDER [None]
  - CELLULITIS [None]
  - GASTROINTESTINAL INFLAMMATION [None]
  - ILEUS [None]
  - NECROSIS [None]
  - NEOPLASM OF APPENDIX [None]
  - NODULE [None]
  - PERITONEAL DISORDER [None]
  - SCAN ABDOMEN ABNORMAL [None]
  - SOFT TISSUE DISORDER [None]
